FAERS Safety Report 8952301 (Version 2)
Quarter: 2012Q4

REPORT INFORMATION
  Report Type: 
  Country: JP (occurrence: JP)
  Receive Date: 20121205
  Receipt Date: 20121212
  Transmission Date: 20130627
  Serious: Yes (Death)
  Sender: FDA-Public Use
  Company Number: JP-009507513-1211JPN012725

PATIENT
  Age: 63 Year
  Sex: Female
  Weight: 62 kg

DRUGS (13)
  1. PEGINTRON [Suspect]
     Indication: CHRONIC HEPATITIS C
     Dosage: 100 Microgram, qw
     Route: 058
     Dates: start: 20120803, end: 20121109
  2. REBETOL [Suspect]
     Indication: CHRONIC HEPATITIS C
     Dosage: 800 mg, qd
     Route: 048
     Dates: start: 20120803, end: 201208
  3. REBETOL [Suspect]
     Dosage: 800 mg, qd
     Route: 048
     Dates: start: 20120901, end: 20120914
  4. REBETOL [Suspect]
     Dosage: 400 mg, qd
     Route: 048
     Dates: start: 20120915, end: 20121111
  5. ALFAROL [Concomitant]
     Indication: OSTEOPOROSIS
     Dosage: 1 mg, qd
     Route: 048
     Dates: start: 20120803, end: 20121111
  6. ALESION [Concomitant]
     Indication: PRURITUS
     Dosage: 20 mg, qd
     Route: 048
     Dates: start: 20121012, end: 20121111
  7. DIOVAN [Concomitant]
     Indication: HYPERTENSION
     Dosage: 80 mg, qd
     Route: 048
     Dates: end: 20121111
  8. TENORMIN [Concomitant]
     Indication: HYPERTENSION
     Dosage: 25 mg, qd
     Route: 048
     Dates: end: 20121111
  9. MEDET [Concomitant]
     Indication: DIABETES MELLITUS
     Dosage: 250 mg, tid
     Route: 048
     Dates: end: 20121111
  10. NOVORAPID [Concomitant]
     Indication: DIABETES MELLITUS
     Dosage: 6(under 1000 unit) qd
     Route: 058
     Dates: end: 20121111
  11. LEVEMIR [Concomitant]
     Indication: DIABETES MELLITUS
     Dosage: 6(under 1000 unit) qd
     Route: 058
     Dates: end: 20121111
  12. NEVANAC [Concomitant]
     Indication: EYE INFLAMMATION
     Dosage: Dosage during a day and administering frequency unknown(formulation EED)
     Route: 047
     Dates: start: 20121019
  13. RINDERON (BETAMETHASONE SODIUM PHOSPHATE) [Concomitant]
     Indication: PRURITUS
     Dosage: Dosage during a day and administering frequency unknown
     Dates: start: 20121019

REACTIONS (1)
  - Cerebral haemorrhage [Fatal]
